FAERS Safety Report 6148561-9 (Version None)
Quarter: 2009Q2

REPORT INFORMATION
  Report Type: 
  Country: None (occurrence: None)
  Receive Date: 20090406
  Receipt Date: 20090406
  Transmission Date: 20091009
  Serious: Yes (Other)
  Sender: FDA-Public Use
  Company Number: None

PATIENT
  Age: 45 Year
  Sex: Female
  Weight: 69.8539 kg

DRUGS (2)
  1. DIGOXIN [Suspect]
     Indication: CARDIAC DISORDER
     Dosage: 0.25 ONCE A DAY PO
     Route: 048
     Dates: start: 20090121, end: 20090402
  2. DIGOXIN [Suspect]
     Indication: DYSPNOEA
     Dosage: 0.25 ONCE A DAY PO
     Route: 048
     Dates: start: 20090121, end: 20090402

REACTIONS (13)
  - ABNORMAL BEHAVIOUR [None]
  - ANOREXIA [None]
  - ARRHYTHMIA [None]
  - ATRIAL FLUTTER [None]
  - CHILLS [None]
  - CONFUSIONAL STATE [None]
  - DIZZINESS [None]
  - DYSPNOEA EXERTIONAL [None]
  - FATIGUE [None]
  - FEELING COLD [None]
  - HEADACHE [None]
  - SOMNOLENCE [None]
  - VISION BLURRED [None]
